FAERS Safety Report 6978377-2 (Version None)
Quarter: 2010Q3

REPORT INFORMATION
  Report Type: 
  Country: None (occurrence: None)
  Receive Date: 20100913
  Receipt Date: 20100901
  Transmission Date: 20110219
  Serious: Yes (Death, Other)
  Sender: FDA-Public Use
  Company Number: US-PFIZER INC-2010045193

PATIENT
  Sex: Male

DRUGS (6)
  1. CHANTIX [Suspect]
     Indication: SMOKING CESSATION THERAPY
     Dosage: UNK
     Dates: start: 20070501, end: 20070701
  2. CHANTIX [Suspect]
     Dosage: UNK
     Dates: start: 20070801, end: 20071001
  3. ACETAMINOPHEN AND HYDROCODONE BITARTRATE [Concomitant]
     Indication: PAIN
     Dosage: UNK
     Dates: start: 20030701, end: 20080324
  4. IBUPROFEN [Concomitant]
     Indication: PAIN
     Dosage: UNK
     Dates: start: 20021101, end: 20080101
  5. KEFLEX [Concomitant]
     Indication: ANTIBIOTIC THERAPY
     Dosage: UNK
     Dates: start: 20021101, end: 20080101
  6. VICODIN [Concomitant]
     Indication: PAIN
     Dosage: UNK
     Dates: start: 20060301, end: 20080205

REACTIONS (8)
  - AGGRESSION [None]
  - ALCOHOL ABUSE [None]
  - ANGER [None]
  - COMPLETED SUICIDE [None]
  - DEPRESSION [None]
  - IRRITABILITY [None]
  - MOOD SWINGS [None]
  - PHYSICAL ASSAULT [None]
